FAERS Safety Report 22345037 (Version 1)
Quarter: 2023Q2

REPORT INFORMATION
  Report Type: Spontaneous
  Country: US (occurrence: None)
  Receive Date: 20230518
  Receipt Date: 20230518
  Transmission Date: 20230721
  Serious: No
  Sender: FDA-Public Use
  Company Number: None

PATIENT
  Age: 75 Year
  Sex: Female

DRUGS (16)
  1. IBRANCE [Suspect]
     Active Substance: PALBOCICLIB
     Indication: Breast cancer female
     Dosage: FREQUENCY : DAILY;?
     Route: 048
  2. ANASTROZOLE [Concomitant]
     Active Substance: ANASTROZOLE
  3. BUMETANIDE [Concomitant]
     Active Substance: BUMETANIDE
  4. CALCIUM + VTAMIN D3 [Concomitant]
  5. EVEROLIMUS [Concomitant]
     Active Substance: EVEROLIMUS
  6. FASLODEX [Concomitant]
     Active Substance: FULVESTRANT
  7. NORCO [Concomitant]
     Active Substance: ACETAMINOPHEN\HYDROCODONE BITARTRATE
  8. JARDIANCE [Concomitant]
     Active Substance: EMPAGLIFLOZIN
  9. LEVOTHYROXINE [Concomitant]
     Active Substance: LEVOTHYROXINE
  10. LISINOPRIL [Concomitant]
     Active Substance: LISINOPRIL
  11. MAGOX [Concomitant]
  12. MULTIVITAMIN WITH MINERALS+IRON+LUTEIN [Concomitant]
  13. OXYCODONE [Concomitant]
     Active Substance: OXYCODONE
  14. PIOGLITAZONE [Concomitant]
     Active Substance: PIOGLITAZONE
  15. SIMVASTATIN [Concomitant]
     Active Substance: SIMVASTATIN
  16. VITAMIN C [Concomitant]
     Active Substance: ASCORBIC ACID

REACTIONS (2)
  - Breast cancer female [None]
  - Disease progression [None]
